FAERS Safety Report 7930038-9 (Version None)
Quarter: 2011Q4

REPORT INFORMATION
  Report Type: 
  Country: None (occurrence: None)
  Receive Date: 20111121
  Receipt Date: 20111116
  Transmission Date: 20120403
  Serious: Yes (Death, Other)
  Sender: FDA-Public Use
  Company Number: US-ASTELLAS-2011US007633

PATIENT
  Sex: Male
  Weight: 91 kg

DRUGS (1)
  1. PROGRAF [Suspect]
     Indication: HEART TRANSPLANT
     Dosage: 1 MG, UID/QD
     Route: 048
     Dates: end: 20110401

REACTIONS (2)
  - DEATH [None]
  - MALAISE [None]
